FAERS Safety Report 8093786-9 (Version None)
Quarter: 2012Q1

REPORT INFORMATION
  Report Type: 
  Country: None (occurrence: None)
  Receive Date: 20120129
  Receipt Date: 20111017
  Transmission Date: 20120608
  Serious: No
  Sender: FDA-Public Use
  Company Number: US-ABBOTT-11P-163-0865994-00

PATIENT
  Age: 69 Year
  Sex: Male

DRUGS (8)
  1. HUMIRA [Suspect]
     Indication: PSORIASIS
     Dates: start: 20090101
  2. ULTRAVIOLET LIGHT THERAPY [Concomitant]
     Indication: PRODUCT USED FOR UNKNOWN INDICATION
  3. ALLOPURINOL [Concomitant]
     Indication: GOUT
  4. COUMADIN [Concomitant]
     Indication: ATRIAL FIBRILLATION
     Dosage: 12.5-15 MG DAILY VARIES
  5. NEURONTIN [Concomitant]
     Indication: PARKINSONISM
  6. NEURONTIN [Concomitant]
     Indication: DIABETIC NEUROPATHY
  7. SINEMET [Concomitant]
     Indication: PRODUCT USED FOR UNKNOWN INDICATION
  8. COMTAN [Concomitant]
     Indication: PRODUCT USED FOR UNKNOWN INDICATION

REACTIONS (2)
  - INCORRECT STORAGE OF DRUG [None]
  - PSORIASIS [None]
